FAERS Safety Report 5704147-9 (Version None)
Quarter: 2008Q2

REPORT INFORMATION
  Report Type: 
  Country: None (occurrence: None)
  Receive Date: 20080414
  Receipt Date: 20080414
  Transmission Date: 20081010
  Serious: Yes (Other)
  Sender: FDA-Public Use
  Company Number: None

PATIENT
  Age: 58 Year
  Sex: Female
  Weight: 60.782 kg

DRUGS (2)
  1. HEPARIN [Suspect]
     Indication: ETHANOL GELATION TEST
     Dosage: 5000 2X A DAY ID
     Dates: start: 20071124, end: 20080201
  2. HEPARIN [Suspect]
     Dosage: 10000 2XA DAY ID
     Dates: start: 20070201, end: 20080408

REACTIONS (8)
  - ABDOMINAL PAIN UPPER [None]
  - CHEST PAIN [None]
  - DRUG INEFFECTIVE [None]
  - FEELING ABNORMAL [None]
  - HEART RATE INCREASED [None]
  - MALAISE [None]
  - NAUSEA [None]
  - PHARMACEUTICAL PRODUCT COMPLAINT [None]
